FAERS Safety Report 5068414-7 (Version None)
Quarter: 2006Q3

REPORT INFORMATION
  Report Type: 
  Country: None (occurrence: None)
  Receive Date: 20060802
  Receipt Date: 20050915
  Transmission Date: 20061208
  Serious: No
  Sender: FDA-Public Use
  Company Number: US-BRISTOL-MYERS SQUIBB COMPANY-13112131

PATIENT
  Age: 85 Year
  Sex: Female

DRUGS (8)
  1. COUMADIN [Suspect]
     Dosage: 5 MG MWF + 2.5 MG TTHSASU
  2. SINGULAIR [Concomitant]
  3. SYNTHROID [Concomitant]
  4. PRAVACHOL [Concomitant]
  5. TOPROL-XL [Concomitant]
  6. MULTI-VITAMIN [Concomitant]
  7. MIRALAX [Concomitant]
  8. DIOVAN HCT [Concomitant]

REACTIONS (1)
  - INTERNATIONAL NORMALISED RATIO INCREASED [None]
